FAERS Safety Report 17661853 (Version 1)
Quarter: 2020Q2

REPORT INFORMATION
  Report Type: Report from Study
  Country: US (occurrence: US)
  Receive Date: 20200413
  Receipt Date: 20200413
  Transmission Date: 20200713
  Serious: Yes (Hospitalization)
  Sender: FDA-Public Use
  Company Number: US-PFIZER INC-2020137947

PATIENT
  Sex: Female
  Weight: 67.6 kg

DRUGS (4)
  1. VINCRISTINE SULFATE. [Suspect]
     Active Substance: VINCRISTINE SULFATE
     Indication: B-CELL TYPE ACUTE LEUKAEMIA
     Dosage: TOTAL DOSE ADMINISTERED THIS COURSE: 6 MG, ON DAY 1 (03JAN2020), DAY 29 (28JAN2020), DAY 57 (25FEB20
     Dates: start: 20200103, end: 20200225
  2. DEXAMETHASONE. [Suspect]
     Active Substance: DEXAMETHASONE
     Indication: B-CELL TYPE ACUTE LEUKAEMIA
     Dosage: 6MG BID ON DAYS 1-5, 29-33, AND 57-61
     Dates: start: 20200103, end: 20200229
  3. METHOTREXATE SODIUM. [Suspect]
     Active Substance: METHOTREXATE SODIUM
     Indication: B-CELL TYPE ACUTE LEUKAEMIA
     Dosage: TOTAL DOSE ADMINISTERED THIS COURSE: 350 MG, TREATMENT HELD ON 11MAR2020 DUE TO LOW ANC OF 392. 15MG
     Dates: start: 20200110
  4. MERCAPTOPURINE. [Suspect]
     Active Substance: MERCAPTOPURINE
     Indication: B-CELL TYPE ACUTE LEUKAEMIA
     Dosage: TOTAL DOSE ADMINISTERED THIS COURSE: 2575 MG, 6-MP WAS INTERRUPTED DUE TO LOW ANC OF 392 ON 11MAR202
     Dates: start: 20200103

REACTIONS (1)
  - Deep vein thrombosis [Recovered/Resolved]

NARRATIVE: CASE EVENT DATE: 20200311
